FAERS Safety Report 5586424-8 (Version None)
Quarter: 2008Q1

REPORT INFORMATION
  Report Type: 
  Country: None (occurrence: None)
  Receive Date: 20080110
  Receipt Date: 20080107
  Transmission Date: 20080703
  Serious: Yes (Hospitalization)
  Sender: FDA-Public Use
  Company Number: US-RB-008911-08

PATIENT
  Sex: Male

DRUGS (3)
  1. SUBUTEX [Suspect]
     Route: 042
     Dates: start: 20070701, end: 20071127
  2. SUBOXONE [Suspect]
     Route: 060
     Dates: start: 20070401, end: 20070501
  3. SUBOXONE [Suspect]
     Route: 060
     Dates: start: 20071223

REACTIONS (3)
  - COMPARTMENT SYNDROME [None]
  - HEADACHE [None]
  - INTENTIONAL DRUG MISUSE [None]
